FAERS Safety Report 17531022 (Version 1)
Quarter: 2020Q1

REPORT INFORMATION
  Report Type: Spontaneous
  Country: US (occurrence: US)
  Receive Date: 20200311
  Receipt Date: 20200311
  Transmission Date: 20200409
  Serious: No
  Sender: FDA-Public Use
  Company Number: US-BAUSCH-BL-2020-004859

PATIENT
  Sex: Male

DRUGS (4)
  1. ATIVAN [Suspect]
     Active Substance: LORAZEPAM
     Indication: TOURETTE^S DISORDER
  2. ATIVAN [Suspect]
     Active Substance: LORAZEPAM
     Indication: ANXIETY
     Dosage: 2 TABLET TID
     Route: 048
     Dates: start: 202001
  3. ATIVAN [Suspect]
     Active Substance: LORAZEPAM
     Indication: ANXIETY
     Dosage: TOOK FOR MANY YEARS
     Route: 048
  4. ATIVAN [Suspect]
     Active Substance: LORAZEPAM
     Indication: TOURETTE^S DISORDER

REACTIONS (2)
  - Product availability issue [Unknown]
  - Drug ineffective [Unknown]

NARRATIVE: CASE EVENT DATE: 2020
